FAERS Safety Report 18822749 (Version 1)
Quarter: 2021Q1

REPORT INFORMATION
  Report Type: Spontaneous
  Country: US (occurrence: US)
  Receive Date: 20210202
  Receipt Date: 20210202
  Transmission Date: 20210419
  Serious: No
  Sender: FDA-Public Use
  Company Number: US-PAIPHARMA-2020-US-023549

PATIENT
  Age: 62 Year
  Sex: Female
  Weight: 63.5 kg

DRUGS (5)
  1. NYSTATIN TABLETS [Suspect]
     Active Substance: NYSTATIN
     Indication: VULVOVAGINAL MYCOTIC INFECTION
     Dosage: UNKNOWN
     Route: 065
  2. NYSTATIN ORAL SUSPENSION USP [Suspect]
     Active Substance: NYSTATIN
     Indication: ORAL CANDIDIASIS
     Dosage: TOOK AN UNSPECIFIED AMOUNT DAILY FOR 4 OR 5 DAYS
     Route: 048
     Dates: start: 201912, end: 201912
  3. ADVIL [Concomitant]
     Active Substance: IBUPROFEN
  4. PREDNISONE. [Suspect]
     Active Substance: PREDNISONE
     Indication: PRODUCT USED FOR UNKNOWN INDICATION
     Dosage: UNKNOWN
     Route: 065
  5. NYSTATIN CREAM [Suspect]
     Active Substance: NYSTATIN
     Indication: VULVOVAGINAL MYCOTIC INFECTION
     Dosage: UNKNOWN
     Route: 065

REACTIONS (5)
  - Skin wrinkling [Recovering/Resolving]
  - Intentional product misuse [Recovered/Resolved]
  - Stomatitis [Recovered/Resolved]
  - Abdominal pain lower [Recovered/Resolved]
  - Drug ineffective [Recovered/Resolved]

NARRATIVE: CASE EVENT DATE: 201912
